FAERS Safety Report 15968617 (Version 1)
Quarter: 2019Q1

REPORT INFORMATION
  Report Type: Spontaneous
  Country: IT (occurrence: IT)
  Receive Date: 20190215
  Receipt Date: 20190215
  Transmission Date: 20190418
  Serious: Yes (Other)
  Sender: FDA-Public Use
  Company Number: PHHY2019IT035522

PATIENT
  Sex: Female

DRUGS (4)
  1. OXALIPLATIN. [Suspect]
     Active Substance: OXALIPLATIN
     Indication: OVARIAN EPITHELIAL CANCER
     Dosage: 85 MG/M2, Q3W (2 HOUR INFUSION ON DAY 1; EVERY THREE WEEKS)
     Route: 041
  2. 5-FLUOROURACIL [Suspect]
     Active Substance: FLUOROURACIL
     Indication: OVARIAN EPITHELIAL CANCER
     Dosage: 400 MG/M2, Q3W (BOLUS ON DAY1; EVERY THREE WEEKS)
     Route: 065
  3. CALCIUM FOLINATE [Suspect]
     Active Substance: LEUCOVORIN CALCIUM
     Indication: OVARIAN EPITHELIAL CANCER
     Dosage: 200 MG/M2, Q3W (2 HOUR INFUSION ON DAY 1; EVERY THREE WEEKS)
     Route: 041
  4. 5-FLUOROURACIL [Suspect]
     Active Substance: FLUOROURACIL
     Dosage: 600 MG/M2, QW (22 HOUR INFUSION FOR TWO CONSECUTIVE DAYS; EVERY THREE WEEKS)
     Route: 065

REACTIONS (1)
  - Thrombocytopenia [Unknown]
